FAERS Safety Report 15532067 (Version 1)
Quarter: 2018Q4

REPORT INFORMATION
  Report Type: Spontaneous
  Country: US (occurrence: US)
  Receive Date: 20181019
  Receipt Date: 20181019
  Transmission Date: 20190205
  Serious: No
  Sender: FDA-Public Use
  Company Number: US-ASTRAZENECA-2018SF22905

PATIENT
  Age: 9304 Day
  Sex: Female
  Weight: 72.6 kg

DRUGS (2)
  1. RITALIN [Concomitant]
     Active Substance: METHYLPHENIDATE HYDROCHLORIDE
     Indication: NARCOLEPSY
     Route: 048
     Dates: start: 2015
  2. FASENRA [Suspect]
     Active Substance: BENRALIZUMAB
     Indication: ASTHMA
     Dosage: 30MG/ML EVERY FOUR WEEKS
     Route: 058
     Dates: start: 201807

REACTIONS (4)
  - Dizziness [Unknown]
  - Nausea [Not Recovered/Not Resolved]
  - Anxiety [Unknown]
  - Vomiting [Not Recovered/Not Resolved]

NARRATIVE: CASE EVENT DATE: 20180905
